FAERS Safety Report 22179213 (Version 3)
Quarter: 2023Q2

REPORT INFORMATION
  Report Type: Report from Study
  Country: DE (occurrence: DE)
  Receive Date: 20230406
  Receipt Date: 20230508
  Transmission Date: 20230721
  Serious: Yes (Other)
  Sender: FDA-Public Use
  Company Number: DE-SA-SAC20230331001080

PATIENT
  Age: 45 Year
  Sex: Male
  Weight: 73 kg

DRUGS (8)
  1. ISATUXIMAB [Suspect]
     Active Substance: ISATUXIMAB
     Indication: Plasma cell myeloma
     Dosage: 730 MG
     Route: 042
     Dates: start: 20190624, end: 20190624
  2. ISATUXIMAB [Suspect]
     Active Substance: ISATUXIMAB
     Dosage: 730 MG
     Route: 042
     Dates: start: 20230119, end: 20230119
  3. LENALIDOMIDE [Suspect]
     Active Substance: LENALIDOMIDE
     Indication: Plasma cell myeloma
     Dosage: 15 MG
     Route: 048
     Dates: start: 20190624, end: 20190624
  4. LENALIDOMIDE [Suspect]
     Active Substance: LENALIDOMIDE
     Dosage: 15 MG
     Route: 048
     Dates: start: 20230206, end: 20230206
  5. BORTEZOMIB [Concomitant]
     Active Substance: BORTEZOMIB
     Indication: Plasma cell myeloma
     Dosage: 2.6 MG
     Route: 058
     Dates: start: 20190624, end: 20190624
  6. BORTEZOMIB [Concomitant]
     Active Substance: BORTEZOMIB
     Dosage: 2.6 MG
     Route: 058
     Dates: start: 20191017, end: 20191017
  7. DEXAMETHASONE [Concomitant]
     Active Substance: DEXAMETHASONE
     Indication: Plasma cell myeloma
     Dosage: 20 MG
     Route: 042
     Dates: start: 20190624, end: 20190624
  8. DEXAMETHASONE [Concomitant]
     Active Substance: DEXAMETHASONE
     Dosage: 20 MG
     Route: 042
     Dates: start: 20200402, end: 20200402

REACTIONS (1)
  - Basal cell carcinoma [Recovered/Resolved]

NARRATIVE: CASE EVENT DATE: 20230207
